FAERS Safety Report 23234925 (Version 1)
Quarter: 2023Q4

REPORT INFORMATION
  Report Type: Spontaneous
  Country: US (occurrence: None)
  Receive Date: 20231127
  Receipt Date: 20231127
  Transmission Date: 20240110
  Serious: Yes (Other)
  Sender: FDA-Public Use
  Company Number: None

PATIENT
  Age: 55 Year
  Sex: Female
  Weight: 77.4 kg

DRUGS (1)
  1. OCTAGAM IMMUNE GLOBULIN (HUMAN) [Suspect]
     Active Substance: HUMAN IMMUNOGLOBULIN G
     Indication: Multifocal motor neuropathy
     Dosage: FREQUENCY : MONTHLY;?
     Route: 042

REACTIONS (4)
  - Infusion related reaction [None]
  - Eye irritation [None]
  - Eye irritation [None]
  - Expired product administered [None]

NARRATIVE: CASE EVENT DATE: 20231124
